FAERS Safety Report 7170481-1 (Version None)
Quarter: 2010Q4

REPORT INFORMATION
  Report Type: 
  Country: None (occurrence: None)
  Receive Date: 20101217
  Receipt Date: 20101210
  Transmission Date: 20110411
  Serious: Yes (Life-Threatening)
  Sender: FDA-Public Use
  Company Number: JP-PFIZER INC-2010171391

PATIENT
  Sex: Female

DRUGS (12)
  1. METHYLNALTREXONE BROMIDE [Suspect]
     Indication: CONSTIPATION
     Dosage: 0.3 MG/KG, SINGLE
     Route: 058
     Dates: start: 20101210, end: 20101210
  2. TAKEPRON [Concomitant]
     Dosage: 15 MG, 1X/DAY
     Dates: start: 20101207
  3. LASIX [Concomitant]
     Dosage: 40 MG, 1X/DAY
     Dates: start: 20101207
  4. ALDACTONE [Concomitant]
     Dosage: 25 MG, 1X/DAY
     Dates: start: 20101207
  5. BETAMETHASONE [Concomitant]
     Dosage: 1 MG, 1X/DAY
     Dates: start: 20101102
  6. NAIXAN [Concomitant]
     Dosage: 100 MG, 1X/DAY
     Dates: start: 20101102
  7. SERENACE [Concomitant]
     Dosage: 1.5 MG, 1X/DAY
     Dates: start: 20101115
  8. NOVAMIN [Concomitant]
     Dosage: 5 MG, AS NEEDED
     Dates: start: 20101118
  9. MORPHINE HYDROCHLORIDE [Concomitant]
     Dosage: 10 MG, AS NEEDED
     Dates: start: 20101027
  10. FENTANYL CITRATE [Concomitant]
     Dosage: 1 MG, 1X/DAY
     Dates: start: 20101109
  11. FENTANYL CITRATE [Concomitant]
     Dosage: 4 MG, 1X/DAY
     Dates: start: 20101109
  12. MAGNESIUM OXIDE [Concomitant]
     Dosage: 750 MG, 1X/DAY
     Dates: start: 20101102

REACTIONS (5)
  - BLOOD PRESSURE ABNORMAL [None]
  - FAECES HARD [None]
  - NAUSEA [None]
  - SHOCK [None]
  - VOMITING [None]
